FAERS Safety Report 13805318 (Version 3)
Quarter: 2017Q3

REPORT INFORMATION
  Report Type: Spontaneous
  Country: CN (occurrence: CN)
  Receive Date: 20170728
  Receipt Date: 20170906
  Transmission Date: 20171127
  Serious: Yes (Hospitalization, Other)
  Sender: FDA-Public Use
  Company Number: CN-SUN PHARMACEUTICAL INDUSTRIES LTD-2017RR-146182

PATIENT
  Age: 61 Year
  Sex: Female

DRUGS (11)
  1. CLONAZEPAM. [Suspect]
     Active Substance: CLONAZEPAM
     Indication: ANXIETY
     Dosage: 10 MG, EVERY NIGHT
     Route: 065
     Dates: start: 2014
  2. CLONAZEPAM. [Suspect]
     Active Substance: CLONAZEPAM
     Indication: MEIGE^S SYNDROME
     Dosage: 0.5 MG, DAILY
     Route: 042
  3. LORAZEPAM. [Suspect]
     Active Substance: LORAZEPAM
     Indication: PRODUCT USED FOR UNKNOWN INDICATION
     Dosage: UNK
     Route: 065
  4. ZYPREXA [Suspect]
     Active Substance: OLANZAPINE
     Indication: MEIGE^S SYNDROME
     Dosage: 1.25 - 3.75 MG PER NIGHT
     Route: 065
  5. CLONAZEPAM. [Suspect]
     Active Substance: CLONAZEPAM
     Indication: MEIGE^S SYNDROME
     Dosage: 0.5 MG, PER NIGHT
     Route: 065
  6. FLUPENTIXOL [Suspect]
     Active Substance: FLUPENTIXOL
     Indication: PRODUCT USED FOR UNKNOWN INDICATION
     Dosage: UNK
     Route: 065
  7. NITRAZEPAM [Suspect]
     Active Substance: NITRAZEPAM
     Indication: PRODUCT USED FOR UNKNOWN INDICATION
     Dosage: UNK
     Route: 065
  8. PAROXETINE. [Suspect]
     Active Substance: PAROXETINE
     Indication: MEIGE^S SYNDROME
     Dosage: 30 MG, DAILY
     Route: 065
  9. HALOPERIDOL. [Suspect]
     Active Substance: HALOPERIDOL
     Indication: MEIGE^S SYNDROME
     Dosage: 2 MG, AT NIGHT
     Route: 065
  10. LEXAPRO [Suspect]
     Active Substance: ESCITALOPRAM OXALATE
     Indication: MEIGE^S SYNDROME
     Dosage: 10 MG, DAILY
     Route: 065
  11. MELITRACEN [Suspect]
     Active Substance: MELITRACEN
     Indication: PRODUCT USED FOR UNKNOWN INDICATION
     Dosage: UNK
     Route: 065

REACTIONS (3)
  - Meige^s syndrome [Recovered/Resolved]
  - Gastrointestinal disorder [Unknown]
  - Condition aggravated [Recovered/Resolved]
